FAERS Safety Report 7951710-0 (Version None)
Quarter: 2011Q4

REPORT INFORMATION
  Report Type: 
  Country: None (occurrence: None)
  Receive Date: 20111201
  Receipt Date: 20111125
  Transmission Date: 20120403
  Serious: Yes (Other)
  Sender: FDA-Public Use
  Company Number: JP-JNJFOC-20111111057

PATIENT
  Age: 8 Decade
  Sex: Female

DRUGS (2)
  1. LEVOFLOXACIN [Suspect]
     Indication: PYELONEPHRITIS
     Route: 065
  2. SERTRALINE HYDROCHLORIDE [Concomitant]
     Route: 065

REACTIONS (1)
  - DELIRIUM [None]
